FAERS Safety Report 11429994 (Version 1)
Quarter: 2015Q3

REPORT INFORMATION
  Report Type: Spontaneous
  Country: DE (occurrence: DE)
  Receive Date: 20150828
  Receipt Date: 20150828
  Transmission Date: 20151125
  Serious: Yes (Other)
  Sender: FDA-Public Use
  Company Number: DE-ASTRAZENECA-2015SE81720

PATIENT
  Age: 64 Year
  Sex: Female

DRUGS (3)
  1. BELOC ZOK MITE [Suspect]
     Active Substance: METOPROLOL SUCCINATE
     Route: 048
     Dates: start: 201412
  2. ELIQUIS [Concomitant]
     Active Substance: APIXABAN
  3. RAMIPRIL. [Concomitant]
     Active Substance: RAMIPRIL

REACTIONS (3)
  - Deafness bilateral [Recovering/Resolving]
  - Dizziness [Not Recovered/Not Resolved]
  - Tinnitus [Recovering/Resolving]
